FAERS Safety Report 6115871-0 (Version None)
Quarter: 2009Q1

REPORT INFORMATION
  Report Type: 
  Country: None (occurrence: None)
  Receive Date: 20090311
  Receipt Date: 20090226
  Transmission Date: 20090719
  Serious: No
  Sender: FDA-Public Use
  Company Number: SPI200900077

PATIENT
  Age: 9 Year
  Sex: Female
  Weight: 40.8 kg

DRUGS (12)
  1. AMITIZA [Suspect]
     Indication: CONSTIPATION
     Dosage: 24 MCG, BID, ORAL; 24 MCG, QD, ORAL; 24 MCG, BID, ORAL; 8 MCG, BID, ORAL
     Route: 048
     Dates: start: 20090206, end: 20090217
  2. AMITIZA [Suspect]
     Indication: IRRITABLE BOWEL SYNDROME
     Dosage: 24 MCG, BID, ORAL; 24 MCG, QD, ORAL; 24 MCG, BID, ORAL; 8 MCG, BID, ORAL
     Route: 048
     Dates: start: 20090206, end: 20090217
  3. AMITIZA [Suspect]
     Indication: CONSTIPATION
     Dosage: 24 MCG, BID, ORAL; 24 MCG, QD, ORAL; 24 MCG, BID, ORAL; 8 MCG, BID, ORAL
     Route: 048
     Dates: start: 20090218
  4. AMITIZA [Suspect]
     Indication: IRRITABLE BOWEL SYNDROME
     Dosage: 24 MCG, BID, ORAL; 24 MCG, QD, ORAL; 24 MCG, BID, ORAL; 8 MCG, BID, ORAL
     Route: 048
     Dates: start: 20090218
  5. AMITIZA [Suspect]
     Indication: CONSTIPATION
     Dosage: 24 MCG, BID, ORAL; 24 MCG, QD, ORAL; 24 MCG, BID, ORAL; 8 MCG, BID, ORAL
     Route: 048
     Dates: start: 20090222
  6. AMITIZA [Suspect]
     Indication: IRRITABLE BOWEL SYNDROME
     Dosage: 24 MCG, BID, ORAL; 24 MCG, QD, ORAL; 24 MCG, BID, ORAL; 8 MCG, BID, ORAL
     Route: 048
     Dates: start: 20090222
  7. AMITIZA [Suspect]
     Indication: CONSTIPATION
     Dosage: 24 MCG, BID, ORAL; 24 MCG, QD, ORAL; 24 MCG, BID, ORAL; 8 MCG, BID, ORAL
     Route: 048
     Dates: start: 20090224
  8. AMITIZA [Suspect]
     Indication: IRRITABLE BOWEL SYNDROME
     Dosage: 24 MCG, BID, ORAL; 24 MCG, QD, ORAL; 24 MCG, BID, ORAL; 8 MCG, BID, ORAL
     Route: 048
     Dates: start: 20090224
  9. BELLADONNA [Concomitant]
  10. MIRALAX [Concomitant]
  11. PRILOSC /00661201/ (OMEPRAZOLE) [Concomitant]
  12. PREVACID [Concomitant]

REACTIONS (8)
  - CHEST DISCOMFORT [None]
  - CHEST PAIN [None]
  - DRUG INEFFECTIVE [None]
  - LACTOSE INTOLERANCE [None]
  - MUSCLE SPASMS [None]
  - OFF LABEL USE [None]
  - TERMINAL INSOMNIA [None]
  - THERAPY REGIMEN CHANGED [None]
